FAERS Safety Report 21727998 (Version 1)
Quarter: 2022Q4

REPORT INFORMATION
  Report Type: Spontaneous
  Country: US (occurrence: US)
  Receive Date: 20221214
  Receipt Date: 20221214
  Transmission Date: 20230112
  Serious: No
  Sender: FDA-Public Use
  Company Number: US-Dermavant-000220

PATIENT
  Age: 62 Year
  Sex: Male

DRUGS (4)
  1. TAPINAROF [Suspect]
     Active Substance: TAPINAROF
     Indication: Psoriasis
     Dosage: SAMPLES TUBES
     Route: 061
     Dates: start: 20220805
  2. TAPINAROF [Suspect]
     Active Substance: TAPINAROF
     Indication: Psoriasis
     Dosage: 60G TUBE
     Dates: end: 2022
  3. LEVOTHYROXINE [Concomitant]
     Active Substance: LEVOTHYROXINE
     Indication: Hypothyroidism
  4. TRAZODONE [Concomitant]
     Active Substance: TRAZODONE HYDROCHLORIDE
     Indication: Insomnia
     Dosage: ONE-HALF TABLET BY MOUTH ONCE DAILY AT BEDTIME FOR INSOMNIA
     Route: 048

REACTIONS (3)
  - Pruritus [Recovering/Resolving]
  - Rash macular [Not Recovered/Not Resolved]
  - Insomnia [Unknown]

NARRATIVE: CASE EVENT DATE: 20220101
